FAERS Safety Report 5763438-6 (Version None)
Quarter: 2008Q2

REPORT INFORMATION
  Report Type: 
  Country: None (occurrence: None)
  Receive Date: 20080528
  Receipt Date: 20080428
  Transmission Date: 20081010
  Serious: No
  Sender: FDA-Public Use
  Company Number: PHEH2008US03816

PATIENT
  Age: 44 Year
  Sex: Female
  Weight: 71.7 kg

DRUGS (1)
  1. TASIGNA [Suspect]
     Indication: CHRONIC MYELOID LEUKAEMIA
     Dosage: 400 MG, BID, ORAL
     Route: 048
     Dates: start: 20080228

REACTIONS (2)
  - PAIN OF SKIN [None]
  - RASH MACULO-PAPULAR [None]
